FAERS Safety Report 5453491-1 (Version None)
Quarter: 2007Q3

REPORT INFORMATION
  Report Type: 
  Country: None (occurrence: None)
  Receive Date: 20070913
  Receipt Date: 20070904
  Transmission Date: 20080115
  Serious: Yes (Hospitalization)
  Sender: FDA-Public Use
  Company Number: M-07-0722

PATIENT
  Age: 79 Year
  Sex: Female

DRUGS (9)
  1. PACERONE [Suspect]
     Indication: ATRIAL FIBRILLATION
     Dosage: 200 MG, QD, PO
     Route: 048
     Dates: start: 20070420, end: 20070901
  2. RANEXA [Suspect]
     Indication: CHEST PAIN
     Dosage: 500 MG, QD, PO
     Route: 048
     Dates: start: 20070808, end: 20070801
  3. HYDROCHLOROTHIAZIDE 25MG TAB [Suspect]
     Indication: CARDIAC FAILURE CONGESTIVE
     Dosage: 25 MG, QD, PO
     Route: 048
     Dates: start: 20070808, end: 20070801
  4. ISOSORBIDE MONONITRATE [Concomitant]
  5. ZOCOR [Concomitant]
  6. PLAVIX [Concomitant]
  7. PRILOSEC [Concomitant]
  8. ZESTORETIC [Concomitant]
  9. ASPIRIN [Concomitant]

REACTIONS (7)
  - BLOOD SODIUM DECREASED [None]
  - DYSPNOEA [None]
  - FATIGUE [None]
  - HEART RATE DECREASED [None]
  - HYPOTENSION [None]
  - MUSCULAR WEAKNESS [None]
  - NAUSEA [None]
